FAERS Safety Report 21817464 (Version 2)
Quarter: 2023Q1

REPORT INFORMATION
  Report Type: Report from Study
  Country: FR (occurrence: FR)
  Receive Date: 20230104
  Receipt Date: 20230124
  Transmission Date: 20230418
  Serious: Yes (Hospitalization)
  Sender: FDA-Public Use
  Company Number: FR-SA-SAC20221026001843

PATIENT
  Age: 57 Year
  Sex: Male
  Weight: 90 kg

DRUGS (12)
  1. ISATUXIMAB [Suspect]
     Active Substance: ISATUXIMAB
     Indication: Plasma cell myeloma
     Dosage: 920 MG
     Route: 042
     Dates: start: 20221103, end: 20221103
  2. ISATUXIMAB [Suspect]
     Active Substance: ISATUXIMAB
     Dosage: 820 MG (DAY 1,8)
     Route: 042
     Dates: start: 20221027, end: 20221027
  3. ISATUXIMAB [Suspect]
     Active Substance: ISATUXIMAB
     Dosage: 900 MG (DAY 1,8)
     Route: 042
     Dates: start: 20221114, end: 20221114
  4. CARFILZOMIB [Suspect]
     Active Substance: CARFILZOMIB
     Indication: Plasma cell myeloma
     Dosage: 118 MG
     Route: 042
     Dates: start: 20221103, end: 20221103
  5. CARFILZOMIB [Suspect]
     Active Substance: CARFILZOMIB
     Dosage: 110 MG (DAY 1,8)
     Route: 042
     Dates: start: 20221027, end: 20221027
  6. CARFILZOMIB [Suspect]
     Active Substance: CARFILZOMIB
     Dosage: 110 MG
     Route: 042
     Dates: start: 20221115, end: 20221115
  7. LENALIDOMIDE [Suspect]
     Active Substance: LENALIDOMIDE
     Indication: Plasma cell myeloma
     Dosage: 25 MG
     Route: 048
     Dates: start: 20221103, end: 20221103
  8. LENALIDOMIDE [Suspect]
     Active Substance: LENALIDOMIDE
     Dosage: 25 MG (DAY 1-8)
     Route: 048
     Dates: start: 20221028, end: 20221028
  9. LENALIDOMIDE [Suspect]
     Active Substance: LENALIDOMIDE
     Dosage: 25 MG
     Route: 048
     Dates: start: 20221114, end: 20221114
  10. DEXAMETHASONE [Suspect]
     Active Substance: DEXAMETHASONE
     Indication: Plasma cell myeloma
     Dosage: 40 MG, D1-D8
     Route: 048
     Dates: start: 20221103, end: 20221103
  11. DEXAMETHASONE [Suspect]
     Active Substance: DEXAMETHASONE
     Dosage: 40 MG, D1, D8, D15
     Route: 048
     Dates: start: 20221027, end: 20221027
  12. DEXAMETHASONE [Suspect]
     Active Substance: DEXAMETHASONE
     Dosage: 40 MG, D1-D8
     Route: 048
     Dates: start: 20221114, end: 20221114

REACTIONS (3)
  - Septic shock [Recovered/Resolved]
  - Acute kidney injury [Recovering/Resolving]
  - Pyrexia [Recovered/Resolved]

NARRATIVE: CASE EVENT DATE: 20221103
